FAERS Safety Report 23446896 (Version 1)
Quarter: 2024Q1

REPORT INFORMATION
  Report Type: Spontaneous
  Country: US (occurrence: US)
  Receive Date: 20240126
  Receipt Date: 20240126
  Transmission Date: 20240410
  Serious: No
  Sender: FDA-Public Use
  Company Number: US-PFIZER INC-202400023952

PATIENT
  Age: 80 Year
  Sex: Male

DRUGS (2)
  1. MORPHINE SULFATE [Suspect]
     Active Substance: MORPHINE SULFATE
     Dosage: UNK
  2. OXYCODONE [Suspect]
     Active Substance: OXYCODONE\OXYCODONE HYDROCHLORIDE
     Dosage: UNK

REACTIONS (1)
  - Drug hypersensitivity [Unknown]
